FAERS Safety Report 6849581-9 (Version None)
Quarter: 2010Q3

REPORT INFORMATION
  Report Type: 
  Country: None (occurrence: None)
  Receive Date: 20100716
  Receipt Date: 20100707
  Transmission Date: 20110219
  Serious: Yes (Other)
  Sender: FDA-Public Use
  Company Number: GB-ABBOTT-10P-167-0645755-00

PATIENT
  Sex: Male
  Weight: 116 kg

DRUGS (1)
  1. HUMIRA [Suspect]
     Indication: PSORIASIS
     Dates: start: 20081219, end: 20090821

REACTIONS (2)
  - ALANINE AMINOTRANSFERASE INCREASED [None]
  - NEUROPATHY PERIPHERAL [None]
